FAERS Safety Report 23407307 (Version 3)
Quarter: 2024Q2

REPORT INFORMATION
  Report Type: Report from Study
  Country: US (occurrence: US)
  Receive Date: 20240116
  Receipt Date: 20240501
  Transmission Date: 20240716
  Serious: Yes (Other)
  Sender: FDA-Public Use
  Company Number: US-ABBVIE-5486340

PATIENT
  Sex: Female

DRUGS (2)
  1. RINVOQ [Suspect]
     Active Substance: UPADACITINIB
     Indication: Rheumatoid arthritis
     Dosage: ER 15 MG
     Route: 048
     Dates: start: 20220925, end: 2023
  2. RINVOQ [Suspect]
     Active Substance: UPADACITINIB
     Indication: Rheumatoid arthritis
     Route: 048

REACTIONS (6)
  - Lumbar vertebral fracture [Unknown]
  - Arthralgia [Unknown]
  - Spinal pain [Unknown]
  - Therapeutic product effect incomplete [Unknown]
  - Spinal deformity [Unknown]
  - Hypertonia [Unknown]

NARRATIVE: CASE EVENT DATE: 20230101
